FAERS Safety Report 5779985-7 (Version None)
Quarter: 2008Q2

REPORT INFORMATION
  Report Type: 
  Country: None (occurrence: None)
  Receive Date: 20080620
  Receipt Date: 20080612
  Transmission Date: 20081010
  Serious: Yes (Other)
  Sender: FDA-Public Use
  Company Number: US-JNJFOC-20080603639

PATIENT
  Age: 9 Decade
  Sex: Female

DRUGS (1)
  1. ULTRAM ER [Suspect]
     Indication: PAIN
     Route: 048

REACTIONS (1)
  - SUICIDAL IDEATION [None]
